FAERS Safety Report 7215106-1 (Version None)
Quarter: 2011Q1

REPORT INFORMATION
  Report Type: 
  Country: None (occurrence: None)
  Receive Date: 20110107
  Receipt Date: 20101004
  Transmission Date: 20110831
  Serious: No
  Sender: FDA-Public Use
  Company Number: A0877693A

PATIENT
  Age: 61 Year
  Sex: Male

DRUGS (9)
  1. METFORMIN [Concomitant]
  2. ASPIRIN [Concomitant]
  3. LOVAZA [Suspect]
     Dosage: 2CAP TWICE PER DAY
     Route: 048
     Dates: start: 20080101
  4. SIMVASTATIN [Concomitant]
  5. DIOVAN [Concomitant]
  6. HYDROCHLOROTHIAZIDE [Concomitant]
  7. NIASPAN [Concomitant]
  8. ATENOLOL [Concomitant]
  9. AVANDIA [Concomitant]

REACTIONS (3)
  - BLOOD TRIGLYCERIDES INCREASED [None]
  - MEDICATION RESIDUE [None]
  - PRODUCT QUALITY ISSUE [None]
